FAERS Safety Report 6469317-3 (Version None)
Quarter: 2009Q4

REPORT INFORMATION
  Report Type: 
  Country: None (occurrence: None)
  Receive Date: 20091203
  Receipt Date: 20091125
  Transmission Date: 20100525
  Serious: Yes (Other)
  Sender: FDA-Public Use
  Company Number: US-JNJFOC-20091200172

PATIENT
  Age: 88 Year
  Sex: Female
  Weight: 61.24 kg

DRUGS (12)
  1. IMODIUM MULTI-SYMPTOM RELIEF [Suspect]
     Route: 048
  2. IMODIUM MULTI-SYMPTOM RELIEF [Suspect]
     Indication: DIARRHOEA
     Dosage: 2 CAPLETS, SOMETIMES 1 CAPLET
     Route: 048
  3. ACTONEL [Concomitant]
     Indication: BONE DISORDER
  4. COLACE [Concomitant]
     Indication: ABNORMAL FAECES
  5. BABY ASPIRIN [Concomitant]
     Indication: GENERAL PHYSICAL CONDITION
  6. HYDROCHLOROTHIAZIDE [Concomitant]
     Indication: DIURETIC THERAPY
  7. DIOVAN [Concomitant]
     Indication: HYPERTENSION
  8. GABAPENTIN [Concomitant]
     Indication: PAIN
     Dosage: 2 PILLS
  9. SIMVASTATIN [Concomitant]
     Indication: BLOOD CHOLESTEROL INCREASED
  10. CALCIUM AND VITAMIN D [Concomitant]
     Indication: MEDICAL DIET
  11. GLUCOSAMINE SULFATE [Concomitant]
     Indication: MEDICAL DIET
  12. CENTRUM SILVER [Concomitant]
     Indication: MEDICAL DIET

REACTIONS (2)
  - FAECES DISCOLOURED [None]
  - HAEMATOCHEZIA [None]
